FAERS Safety Report 6499969-3 (Version None)
Quarter: 2009Q4

REPORT INFORMATION
  Report Type: 
  Country: None (occurrence: None)
  Receive Date: 20091216
  Receipt Date: 20091201
  Transmission Date: 20100525
  Serious: Yes (Other)
  Sender: FDA-Public Use
  Company Number: US-BIOGENIDEC-2009BI039422

PATIENT

DRUGS (1)
  1. AVONEX [Suspect]
     Indication: DRUG EXPOSURE DURING PREGNANCY
     Route: 064
     Dates: start: 20080815, end: 20091031

REACTIONS (1)
  - CONGENITAL DIAPHRAGMATIC HERNIA [None]
